FAERS Safety Report 23655539 (Version 1)
Quarter: 2024Q1

REPORT INFORMATION
  Report Type: Spontaneous
  Country: GB (occurrence: None)
  Receive Date: 20240321
  Receipt Date: 20240321
  Transmission Date: 20240409
  Serious: Yes (Other)
  Sender: FDA-Public Use
  Company Number: 2024A060961

PATIENT
  Age: 74 Year
  Sex: Female
  Weight: 75 kg

DRUGS (14)
  1. FASENRA [Suspect]
     Active Substance: BENRALIZUMAB
     Dosage: DOSE 1; ; UNKNOWN
     Dates: start: 20200810
  2. FASENRA [Suspect]
     Active Substance: BENRALIZUMAB
     Dosage: DOSE 1; ; UNKNOWN
     Dates: start: 20200909
  3. FASENRA [Suspect]
     Active Substance: BENRALIZUMAB
     Dosage: DOSE 3 UNKNOWN
     Dates: start: 20201007
  4. ACCORD HEALTHCARE LOSARTAN [Concomitant]
     Indication: Asthma
     Dosage: UNKNOWN
     Dates: start: 2016
  5. ACCORD-UK PREDNISOLONE [Concomitant]
     Indication: Asthma
     Dosage: UNKNOWN
     Dates: start: 200607
  6. BENDROFLUMETHIAZIDE [Concomitant]
     Active Substance: BENDROFLUMETHIAZIDE
     Indication: Asthma
     Dosage: UNKNOWN
     Dates: start: 2016
  7. CARBOCYSTEINE [Concomitant]
     Active Substance: CARBOCYSTEINE
     Dosage: UNKNOWN
     Dates: start: 2016
  8. GLENMARK GENERICS DESLORATADINE [Concomitant]
     Indication: Asthma
     Dosage: UNKNOWN
     Dates: start: 2016
  9. GLUCOPHAGE [Concomitant]
     Active Substance: METFORMIN HYDROCHLORIDE
     Indication: Type 2 diabetes mellitus
     Dosage: UNKNOWN
     Dates: start: 2022
  10. FLUTICASONE FUROATE\VILANTEROL TRIFENATATE [Concomitant]
     Active Substance: FLUTICASONE FUROATE\VILANTEROL TRIFENATATE
     Indication: Asthma
     Dosage: UNKNOWN
     Dates: start: 2016
  11. SIMVASTATIN [Concomitant]
     Active Substance: SIMVASTATIN
     Indication: Blood pressure measurement
     Dosage: UNKNOWN
     Route: 048
     Dates: start: 2016
  12. SPIRIVA [Concomitant]
     Active Substance: TIOTROPIUM BROMIDE MONOHYDRATE
     Indication: Asthma
     Dosage: UNKNOWN
     Dates: start: 2016
  13. LANSOPRAZOLE [Concomitant]
     Active Substance: LANSOPRAZOLE
     Indication: Asthma
     Dosage: UNKNOWN
     Dates: start: 2016
  14. VENTOLIN [Concomitant]
     Active Substance: ALBUTEROL SULFATE
     Indication: Asthma
     Dosage: UNKNOWN
     Dates: start: 2016

REACTIONS (5)
  - Rash [Not Recovered/Not Resolved]
  - Pruritus [Unknown]
  - Skin papilloma [Unknown]
  - Acrochordon [Unknown]
  - Seborrhoeic keratosis [Unknown]

NARRATIVE: CASE EVENT DATE: 20200815
